FAERS Safety Report 24731073 (Version 1)
Quarter: 2024Q4

REPORT INFORMATION
  Report Type: Spontaneous
  Country: CN (occurrence: CN)
  Receive Date: 20241213
  Receipt Date: 20241213
  Transmission Date: 20250114
  Serious: Yes (Other)
  Sender: RANBAXY
  Company Number: CN-SUN PHARMACEUTICAL INDUSTRIES LTD-2024R1-484195

PATIENT
  Age: 18 Year
  Sex: Male

DRUGS (6)
  1. DEXAMETHASONE [Suspect]
     Active Substance: DEXAMETHASONE
     Indication: Leukaemia
     Dosage: UNK TWO CYCLES
     Route: 065
     Dates: start: 201808, end: 201904
  2. CYTARABINE [Suspect]
     Active Substance: CYTARABINE
     Indication: Acute lymphocytic leukaemia
     Dosage: UNK TWO CYCLES
     Route: 065
     Dates: start: 201808, end: 201904
  3. CYCLOPHOSPHAMIDE [Suspect]
     Active Substance: CYCLOPHOSPHAMIDE
     Indication: Acute lymphocytic leukaemia
     Dosage: UNK TWO CYCLES
     Route: 065
     Dates: start: 201808, end: 201904
  4. EPIRUBICIN [Suspect]
     Active Substance: EPIRUBICIN
     Indication: Acute lymphocytic leukaemia
     Dosage: UNK TWO CYCLES
     Route: 065
     Dates: start: 201808, end: 201904
  5. METHOTREXATE [Suspect]
     Active Substance: METHOTREXATE
     Indication: Acute lymphocytic leukaemia
     Dosage: UNK TWO CYCLES
     Route: 037
     Dates: start: 201808, end: 201912
  6. VINDESINE [Suspect]
     Active Substance: VINDESINE
     Indication: Acute lymphocytic leukaemia
     Dosage: UNK TWO CYCLES
     Route: 065
     Dates: start: 201808, end: 201904

REACTIONS (4)
  - Myelosuppression [Unknown]
  - Infection [Unknown]
  - Therapeutic response decreased [Unknown]
  - Drug intolerance [Unknown]
